FAERS Safety Report 5154290-0 (Version None)
Quarter: 2006Q4

REPORT INFORMATION
  Report Type: 
  Country: None (occurrence: None)
  Receive Date: 20061114
  Receipt Date: 20061103
  Transmission Date: 20070319
  Serious: Yes (Life-Threatening, Hospitalization)
  Sender: FDA-Public Use
  Company Number: GXKR2006TR07064

PATIENT
  Age: 53 Year
  Sex: Male

DRUGS (2)
  1. METHYLPREDNISOLONE [Suspect]
     Indication: ENDOCRINE OPHTHALMOPATHY
     Dosage: 1 G, QD DILUTED IN 250CC SALINE SOLUTION, INTRAVENOUS
     Route: 042
  2. IODINE (131 I) (IODINE (131 I)) [Concomitant]

REACTIONS (8)
  - ACUTE PULMONARY OEDEMA [None]
  - CARDIAC FAILURE ACUTE [None]
  - ENDOTRACHEAL INTUBATION COMPLICATION [None]
  - FLUID OVERLOAD [None]
  - HYPERTENSION [None]
  - HYPERTHYROIDISM [None]
  - LEFT VENTRICULAR FAILURE [None]
  - RESPIRATORY DISTRESS [None]
